FAERS Safety Report 23186215 (Version 1)
Quarter: 2023Q4

REPORT INFORMATION
  Report Type: Report from Study
  Country: US (occurrence: US)
  Receive Date: 20231115
  Receipt Date: 20231115
  Transmission Date: 20240109
  Serious: Yes (Hospitalization)
  Sender: FDA-Public Use
  Company Number: US-GILEAD-2023-0651159

PATIENT
  Sex: Female

DRUGS (1)
  1. AZTREONAM LYSINE [Suspect]
     Active Substance: AZTREONAM LYSINE
     Indication: Bacterial infection
     Dosage: 75 MG, TID (INHALE 1 ML (75 MG) VIA ALTERA NEBULIZER 3 TIMES A DAY 28 DAYS ON AND 28 DAYS OFF)
     Route: 055

REACTIONS (1)
  - Gastrointestinal disorder [Unknown]
